FAERS Safety Report 20692239 (Version 3)
Quarter: 2022Q2

REPORT INFORMATION
  Report Type: Spontaneous
  Country: US (occurrence: US)
  Receive Date: 20220409
  Receipt Date: 20220505
  Transmission Date: 20220721
  Serious: Yes (Other)
  Sender: FDA-Public Use
  Company Number: US-TEVA-2022-US-2017368

PATIENT
  Age: 61 Year
  Sex: Male
  Weight: 88.45 kg

DRUGS (6)
  1. QVAR REDIHALER [Suspect]
     Active Substance: BECLOMETHASONE DIPROPIONATE
     Indication: Asthma
     Dosage: INHALATION - AEROSOL, 80 MCG, 2 ACTUATIONS EVERY NIGHT AS NEEDED
     Route: 065
     Dates: start: 20180101
  2. SOTALOL [Concomitant]
     Active Substance: SOTALOL
  3. AMLODIPINE [Concomitant]
     Active Substance: AMLODIPINE BESYLATE
  4. CANDESARTAN [Concomitant]
     Active Substance: CANDESARTAN
  5. CHLORTHALIDONE [Concomitant]
     Active Substance: CHLORTHALIDONE
  6. JANUMET [Concomitant]
     Active Substance: METFORMIN HYDROCHLORIDE\SITAGLIPTIN PHOSPHATE

REACTIONS (4)
  - Throat tightness [Unknown]
  - Drug ineffective [Unknown]
  - Dyspnoea [Unknown]
  - Choking sensation [Unknown]
